FAERS Safety Report 9260704 (Version 2)
Quarter: 2013Q2

REPORT INFORMATION
  Report Type: Report from Study
  Country: US (occurrence: US)
  Receive Date: 20130429
  Receipt Date: 20130619
  Transmission Date: 20140414
  Serious: Yes (Hospitalization)
  Sender: FDA-Public Use
  Company Number: US-SANOFI-AVENTIS-2013SA041691

PATIENT
  Age: 82 Year
  Sex: Male
  Weight: 81.6 kg

DRUGS (20)
  1. DOCETAXEL [Suspect]
     Indication: PROSTATE CANCER METASTATIC
     Route: 042
     Dates: start: 20120607, end: 20120607
  2. DOCETAXEL [Suspect]
     Indication: PROSTATE CANCER METASTATIC
     Route: 042
     Dates: start: 20130412, end: 20130412
  3. PREDNISONE [Suspect]
     Indication: PROSTATE CANCER METASTATIC
     Route: 048
     Dates: start: 20120607, end: 20130415
  4. CHOLECALCIFEROL [Concomitant]
     Indication: PROPHYLAXIS
     Route: 048
     Dates: start: 20101115
  5. FERROUS SULFATE [Concomitant]
     Indication: PROPHYLAXIS
     Route: 048
     Dates: start: 20111024
  6. FOLIC ACID [Concomitant]
     Indication: PROPHYLAXIS
     Route: 048
     Dates: start: 20111024
  7. GLYBURIDE [Concomitant]
     Indication: PROPHYLAXIS
     Route: 048
     Dates: start: 20101106
  8. GUAIFENESIN [Concomitant]
     Indication: PROPHYLAXIS
     Route: 048
     Dates: start: 20090227
  9. HYDROCHLOROTHIAZIDE [Concomitant]
     Indication: PROPHYLAXIS
     Route: 048
     Dates: start: 20011128
  10. LOPERAMIDE [Concomitant]
     Indication: PROPHYLAXIS
     Route: 048
     Dates: start: 20120607
  11. METFORMIN [Concomitant]
     Indication: PROPHYLAXIS
     Route: 048
     Dates: start: 20080708
  12. METOCLOPRAMIDE [Concomitant]
     Indication: PROPHYLAXIS
     Route: 048
     Dates: start: 20120607
  13. POTASSIUM CHLORIDE [Concomitant]
     Indication: PROPHYLAXIS
     Route: 048
     Dates: start: 20080708
  14. ZOMETA [Concomitant]
     Indication: PROPHYLAXIS
     Route: 041
     Dates: start: 20110128
  15. OXYCODONE [Concomitant]
     Indication: PROPHYLAXIS
     Route: 048
     Dates: start: 20120531
  16. PEGFILGRASTIM [Concomitant]
     Indication: PROPHYLAXIS
     Route: 058
     Dates: start: 20120628
  17. CIPROFLOXACIN [Concomitant]
     Route: 048
     Dates: start: 20130215
  18. LEUPROLIDE ACETATE [Concomitant]
     Indication: PROPHYLAXIS
     Route: 058
     Dates: start: 20110815
  19. IBUPROFEN [Concomitant]
     Indication: PROPHYLAXIS
     Route: 048
     Dates: start: 20130219
  20. ENOXAPARIN [Concomitant]
     Indication: PROPHYLAXIS
     Route: 058
     Dates: start: 20130319

REACTIONS (1)
  - Hypoglycaemia [Recovered/Resolved]
